FAERS Safety Report 21031788 (Version 2)
Quarter: 2022Q3

REPORT INFORMATION
  Report Type: Spontaneous
  Country: FR (occurrence: FR)
  Receive Date: 20220701
  Receipt Date: 20220728
  Transmission Date: 20221027
  Serious: Yes (Other)
  Sender: FDA-Public Use
  Company Number: FR-BAUSCH-BL-2022-014526

PATIENT
  Age: 70 Year
  Sex: Female

DRUGS (5)
  1. TRAVOPROST [Suspect]
     Active Substance: TRAVOPROST
     Indication: Intraocular pressure increased
     Dosage: 1 DROP IN EACH EYE IN THE EVENING?STARTED ON JANUARY OR FEBRUARY 2021
     Route: 047
     Dates: start: 2021, end: 2021
  2. TRAVOPROST [Suspect]
     Active Substance: TRAVOPROST
     Route: 047
     Dates: end: 20220630
  3. CARTEOLOL HYDROCHLORIDE [Suspect]
     Active Substance: CARTEOLOL HYDROCHLORIDE
     Indication: Intraocular pressure increased
     Dosage: ONE DROP IN EACH EYE IN THE MORNING?STARTED ON JANUARY OR FEBRUARY 2021
     Route: 047
     Dates: start: 2021, end: 2021
  4. CARTEOLOL HYDROCHLORIDE [Suspect]
     Active Substance: CARTEOLOL HYDROCHLORIDE
     Route: 047
     Dates: end: 20220630
  5. DORZOLAMIDE HYDROCHLORIDE\TIMOLOL MALEATE [Concomitant]
     Active Substance: DORZOLAMIDE HYDROCHLORIDE\TIMOLOL MALEATE
     Indication: Intraocular pressure increased
     Dosage: 1 DROP IN MORNING AND 1 DROP IN EVENING
     Route: 065
     Dates: start: 20220701

REACTIONS (15)
  - Cataract [Unknown]
  - Intraocular pressure increased [Unknown]
  - Condition aggravated [Unknown]
  - Product after taste [Not Recovered/Not Resolved]
  - Lid sulcus deepened [Recovered/Resolved]
  - Muscle spasms [Unknown]
  - Growth of eyelashes [Not Recovered/Not Resolved]
  - Hair growth abnormal [Not Recovered/Not Resolved]
  - Skin discolouration [Recovering/Resolving]
  - Instillation site erythema [Recovered/Resolved]
  - Instillation site pain [Recovered/Resolved]
  - Nasal congestion [Not Recovered/Not Resolved]
  - Throat irritation [Recovered/Resolved]
  - Urinary incontinence [Not Recovered/Not Resolved]
  - Disease recurrence [Not Recovered/Not Resolved]

NARRATIVE: CASE EVENT DATE: 20210101
